FAERS Safety Report 17908564 (Version 2)
Quarter: 2020Q2

REPORT INFORMATION
  Report Type: Spontaneous
  Country: CA (occurrence: CA)
  Receive Date: 20200617
  Receipt Date: 20200618
  Transmission Date: 20200714
  Serious: Yes (Death)
  Sender: FDA-Public Use
  Company Number: CA-PFIZER INC-2020232437

PATIENT
  Age: 19 Year
  Sex: Male

DRUGS (14)
  1. MORPHINE [Concomitant]
     Active Substance: MORPHINE
     Dosage: 12000 MG
     Route: 042
     Dates: start: 19921003
  2. LORAZEPAM. [Concomitant]
     Active Substance: LORAZEPAM
     Indication: MYOCLONUS
     Dosage: UNK
     Route: 060
     Dates: start: 19921002
  3. DIAZEPAM. [Concomitant]
     Active Substance: DIAZEPAM
     Indication: MYOCLONUS
     Dosage: 50 MG
     Route: 051
     Dates: start: 19921002
  4. MIDAZOLAM. [Concomitant]
     Active Substance: MIDAZOLAM
     Indication: MYOCLONUS
     Dosage: 6 MG/ HR
     Route: 041
     Dates: start: 19921003
  5. DIAZEPAM. [Concomitant]
     Active Substance: DIAZEPAM
     Dosage: 10 MG (BOLUSES)
     Route: 040
     Dates: start: 19921003
  6. CARBAMAZEPINE. [Suspect]
     Active Substance: CARBAMAZEPINE
     Indication: MYOCLONUS
  7. DIAZEPAM. [Concomitant]
     Active Substance: DIAZEPAM
     Dosage: 5 MG (BOLUSES)
     Route: 040
     Dates: start: 19921003
  8. CARBAMAZEPINE. [Suspect]
     Active Substance: CARBAMAZEPINE
     Indication: SEIZURE
     Dosage: UNK
  9. MORPHINE [Concomitant]
     Active Substance: MORPHINE
     Dosage: 6000 MG
     Dates: start: 199210
  10. LEVORPHANOL TARTRATE. [Concomitant]
     Active Substance: LEVORPHANOL TARTRATE
     Indication: PAIN
     Dosage: UNK (EQUIANALGESIC TO APPROXIMATELY 0.5% OF THE EFFECTIVE DOSE OF MORPHINE)
     Route: 051
     Dates: start: 19921003
  11. PHENYTOIN. [Suspect]
     Active Substance: PHENYTOIN
     Indication: SEIZURE
     Dosage: UNK (LOADING DOSE)
     Dates: start: 19921003
  12. PHENYTOIN. [Suspect]
     Active Substance: PHENYTOIN
     Indication: MYOCLONUS
  13. DIAZEPAM. [Concomitant]
     Active Substance: DIAZEPAM
     Dosage: 102 MG
     Route: 051
     Dates: start: 19921003
  14. MORPHINE [Concomitant]
     Active Substance: MORPHINE
     Indication: PAIN
     Dosage: UNK
     Dates: start: 19921002

REACTIONS (1)
  - Drug ineffective [Fatal]
